FAERS Safety Report 5108432-3 (Version None)
Quarter: 2006Q3

REPORT INFORMATION
  Report Type: 
  Country: None (occurrence: None)
  Receive Date: 20060915
  Receipt Date: 20060830
  Transmission Date: 20061208
  Serious: Yes (Hospitalization)
  Sender: FDA-Public Use
  Company Number: 2006001580

PATIENT
  Age: 71 Year
  Sex: Male

DRUGS (11)
  1. ERLOTINIB (TABLET) [Suspect]
     Indication: NEOPLASM MALIGNANT
     Dosage: 150 MG (QD), ORAL
     Route: 048
     Dates: start: 20060727
  2. CISPLATIN [Suspect]
     Indication: NEOPLASM MALIGNANT
     Dosage: 75 MG/M^2, INTRAVENOUS
     Route: 042
     Dates: start: 20060727
  3. DOCETAXEL (DOCETAXEL) (INJECTION FOR INFUSION) [Suspect]
     Indication: NEOPLASM MALIGNANT
     Dosage: SEE IMAGE, INTRAVENOUS
     Route: 042
     Dates: start: 20051229, end: 20060119
  4. DOCETAXEL (DOCETAXEL) (INJECTION FOR INFUSION) [Suspect]
     Indication: NEOPLASM MALIGNANT
     Dosage: SEE IMAGE, INTRAVENOUS
     Route: 042
     Dates: start: 20060209, end: 20060309
  5. DOCETAXEL (DOCETAXEL) (INJECTION FOR INFUSION) [Suspect]
     Indication: NEOPLASM MALIGNANT
     Dosage: SEE IMAGE, INTRAVENOUS
     Route: 042
     Dates: start: 20060727
  6. IMODIUM [Concomitant]
  7. HYDROCODONE (HYDROCODONE) [Concomitant]
  8. DEXAMETHASONE TAB [Concomitant]
  9. ZOFRAN [Concomitant]
  10. EMEND [Concomitant]
  11. NEULASTA [Concomitant]

REACTIONS (12)
  - ATRIAL FIBRILLATION [None]
  - ATRIAL FLUTTER [None]
  - BACTERAEMIA [None]
  - BLOOD PRESSURE SYSTOLIC INCREASED [None]
  - DIARRHOEA [None]
  - EMBOLIC STROKE [None]
  - ENCEPHALITIS [None]
  - MENINGITIS [None]
  - PNEUMONIA ASPIRATION [None]
  - PNEUMONITIS [None]
  - RENAL FAILURE ACUTE [None]
  - VENTRICULAR TACHYCARDIA [None]
